FAERS Safety Report 6892037-8 (Version None)
Quarter: 2010Q3

REPORT INFORMATION
  Report Type: 
  Country: None (occurrence: None)
  Receive Date: 20100731
  Receipt Date: 20071221
  Transmission Date: 20110219
  Serious: Yes (Other)
  Sender: FDA-Public Use
  Company Number: US-PFIZER INC-2007107723

PATIENT
  Sex: Male
  Weight: 96.2 kg

DRUGS (7)
  1. NEURONTIN [Suspect]
     Indication: NEUROPATHY PERIPHERAL
     Dates: start: 20020101
  2. TRILEPTAL [Concomitant]
  3. PRAVASTATIN [Concomitant]
  4. ATENOLOL [Concomitant]
  5. ZETIA [Concomitant]
  6. ACTOS [Concomitant]
  7. DITROPAN [Concomitant]

REACTIONS (5)
  - ABNORMAL DREAMS [None]
  - DIABETES MELLITUS [None]
  - SLEEP DISORDER [None]
  - VISION BLURRED [None]
  - WEIGHT INCREASED [None]
